FAERS Safety Report 6767599-1 (Version None)
Quarter: 2010Q2

REPORT INFORMATION
  Report Type: 
  Country: None (occurrence: None)
  Receive Date: 20100614
  Receipt Date: 20100609
  Transmission Date: 20101027
  Serious: Yes (Death)
  Sender: FDA-Public Use
  Company Number: PHHY2010JP37810

PATIENT
  Sex: Female

DRUGS (3)
  1. ZOLEDRONATE T29581+ [Suspect]
     Indication: METASTASES TO BONE
     Dosage: 4 MG (EVERY 19 DAYS)
     Route: 041
     Dates: start: 20080118, end: 20080206
  2. ROPION [Concomitant]
     Dosage: 30 MG
     Dates: start: 20080129, end: 20080207
  3. PENTAZOCINE LACTATE [Concomitant]
     Dosage: 30 MG
     Dates: start: 20080129, end: 20080206

REACTIONS (1)
  - DEATH [None]
